FAERS Safety Report 21246083 (Version 1)
Quarter: 2022Q3

REPORT INFORMATION
  Report Type: Other
  Country: US (occurrence: None)
  Receive Date: 20220824
  Receipt Date: 20220824
  Transmission Date: 20221027
  Serious: No
  Sender: FDA-Public Use
  Company Number: US-ROCHE-3165443

PATIENT
  Sex: Male

DRUGS (3)
  1. OCREVUS [Suspect]
     Active Substance: OCRELIZUMAB
     Indication: Primary progressive multiple sclerosis
     Dosage: DOT: 19-JAN-2022, 14-JUL-2021, 21-JAN-2021, 07-JUL-2020,
     Route: 042
     Dates: start: 20200707
  2. TYSABRI [Concomitant]
     Active Substance: NATALIZUMAB
  3. IBUPROFEN [Concomitant]
     Active Substance: IBUPROFEN

REACTIONS (2)
  - COVID-19 [Recovering/Resolving]
  - Haemorrhage [Recovered/Resolved]
